FAERS Safety Report 11365921 (Version 1)
Quarter: 2015Q3

REPORT INFORMATION
  Report Type: Spontaneous
  Country: AR (occurrence: AR)
  Receive Date: 20150811
  Receipt Date: 20150811
  Transmission Date: 20151125
  Serious: Yes (Other)
  Sender: FDA-Public Use
  Company Number: AR-BAYER-2015-390302

PATIENT
  Sex: Female

DRUGS (2)
  1. ADALAT [Suspect]
     Active Substance: NIFEDIPINE
  2. ADALAT [Suspect]
     Active Substance: NIFEDIPINE

REACTIONS (1)
  - Hypertension [Not Recovered/Not Resolved]
